FAERS Safety Report 14181459 (Version 1)
Quarter: 2017Q4

REPORT INFORMATION
  Report Type: Spontaneous
  Country: FR (occurrence: FR)
  Receive Date: 20171112
  Receipt Date: 20171112
  Transmission Date: 20180321
  Serious: Yes (Other)
  Sender: FDA-Public Use
  Company Number: FR-MERCK KGAA-2033869

PATIENT
  Age: 60 Year
  Sex: Female

DRUGS (1)
  1. NOVOTHYROX [Suspect]
     Active Substance: LEVOTHYROXINE SODIUM
     Indication: HYPOTHYROIDISM
     Route: 048
     Dates: start: 20170728, end: 20170829

REACTIONS (9)
  - Eye irritation [Unknown]
  - Depression [Unknown]
  - Gastrointestinal disorder [Unknown]
  - Arthralgia [Unknown]
  - Nausea [Unknown]
  - Product formulation issue [Unknown]
  - Mood swings [Unknown]
  - Pain in extremity [Unknown]
  - Hot flush [Unknown]

NARRATIVE: CASE EVENT DATE: 201708
